FAERS Safety Report 13801257 (Version 2)
Quarter: 2017Q3

REPORT INFORMATION
  Report Type: Spontaneous
  Country: CN (occurrence: CN)
  Receive Date: 20170727
  Receipt Date: 20170801
  Transmission Date: 20171127
  Serious: Yes (Other)
  Sender: FDA-Public Use
  Company Number: CN-PFIZER INC-2017322913

PATIENT
  Age: 35 Year
  Sex: Female
  Weight: 45 kg

DRUGS (2)
  1. ENDOXAN [Suspect]
     Active Substance: CYCLOPHOSPHAMIDE
     Indication: BREAST CANCER
     Dosage: 850 MG, 1X/DAY
     Route: 042
     Dates: start: 20170220, end: 20170220
  2. PHARMORUBICIN [Suspect]
     Active Substance: EPIRUBICIN
     Indication: BREAST CANCER
     Dosage: 120 MG, 1X/DAY
     Route: 041
     Dates: start: 20170204, end: 20170204

REACTIONS (2)
  - White blood cell count decreased [Recovered/Resolved]
  - Agranulocytosis [Recovered/Resolved]

NARRATIVE: CASE EVENT DATE: 20170213
